FAERS Safety Report 7689174 (Version 5)
Quarter: 2012Q4

REPORT INFORMATION
  Report Type: 
  Country: JP (occurrence: JP)
  Receive Date: 20101201
  Receipt Date: 20121002
  Transmission Date: 20130627
  Serious: Yes (Death, Other)
  Sender: FDA-Public Use
  Company Number: JP-ROCHE-744864

PATIENT
  Age: 74 Year
  Sex: Male
  Weight: 40 kg

DRUGS (13)
  1. AVASTIN [Suspect]
     Indication: ADENOSQUAMOUS CELL LUNG CANCER
     Route: 041
     Dates: start: 20101028, end: 20101028
  2. CARBOPLATIN [Suspect]
     Indication: ADENOSQUAMOUS CELL LUNG CANCER
     Dosage: NOTE: DOSAGE IS UNCERTAIN
     Route: 041
     Dates: start: 20101028, end: 20101028
  3. ALIMTA [Suspect]
     Indication: ADENOSQUAMOUS CELL LUNG CANCER
     Dosage: NOTE: DOSAGE IS UNCERTAIN.
     Route: 041
     Dates: start: 20101028, end: 20101028
  4. KYTRIL [Concomitant]
     Route: 041
     Dates: start: 20101028, end: 20101028
  5. DECADRON [Concomitant]
     Indication: PROPHYLAXIS
     Route: 048
     Dates: start: 20101029, end: 20101030
  6. DECADRON [Concomitant]
     Route: 041
     Dates: start: 20101028, end: 20101028
  7. PANVITAN [Concomitant]
     Indication: PROPHYLAXIS
     Route: 048
  8. EMEND [Concomitant]
     Indication: PROPHYLAXIS
     Route: 048
     Dates: start: 20101028, end: 20101028
  9. EMEND [Concomitant]
     Route: 048
     Dates: start: 20101029, end: 20101030
  10. HARNAL [Concomitant]
     Route: 048
  11. TAKEPRON [Concomitant]
     Route: 048
  12. MUCOSOLVAN [Concomitant]
     Indication: CHRONIC OBSTRUCTIVE PULMONARY DISEASE
     Route: 048
  13. YODEL-S [Concomitant]
     Indication: CONSTIPATION
     Route: 048

REACTIONS (6)
  - Disease progression [Fatal]
  - Renal failure acute [Fatal]
  - Sepsis [Fatal]
  - Multi-organ failure [Fatal]
  - Neutrophil count decreased [Unknown]
  - Disseminated intravascular coagulation [Unknown]
